FAERS Safety Report 10047103 (Version 1)
Quarter: 2014Q1

REPORT INFORMATION
  Report Type: Spontaneous
  Country: US (occurrence: US)
  Receive Date: 20140331
  Receipt Date: 20140331
  Transmission Date: 20141002
  Serious: No
  Sender: FDA-Public Use
  Company Number: US-MYLANLABS-2013S1007929

PATIENT
  Age: 56 Year
  Sex: Male

DRUGS (4)
  1. FENTANYL TRANSDERMAL SYSTEM [Suspect]
     Indication: PAIN
     Dosage: CHANGE PATCHES EVERY 72 HOURS.
     Route: 062
     Dates: start: 201209
  2. CYMBALTA [Concomitant]
     Indication: PAIN
     Route: 048
     Dates: start: 201302, end: 201303
  3. CYMBALTA [Concomitant]
     Indication: PAIN
     Dates: start: 2013, end: 201302
  4. HYDROCODONE W/ACETAMINOPHEN [Concomitant]
     Indication: PAIN
     Dosage: HAS BEEN TAKING THIS FOR YEARS.

REACTIONS (6)
  - Amnesia [Not Recovered/Not Resolved]
  - Feeling abnormal [Not Recovered/Not Resolved]
  - Insomnia [Not Recovered/Not Resolved]
  - Hot flush [Not Recovered/Not Resolved]
  - Chills [Not Recovered/Not Resolved]
  - Somnolence [Not Recovered/Not Resolved]
